FAERS Safety Report 4733525-X (Version None)
Quarter: 2005Q3

REPORT INFORMATION
  Report Type: 
  Country: None (occurrence: None)
  Receive Date: 20050729
  Receipt Date: 20050714
  Transmission Date: 20060218
  Serious: Yes (Other)
  Sender: FDA-Public Use
  Company Number: 2005-BP-11788RO

PATIENT
  Age: 78 Year
  Sex: Male

DRUGS (2)
  1. LEUCOVORIN CALCIUM TABLETS UPS, 10 MG (CALCIUM FOLINATE) [Suspect]
     Indication: COLON CANCER
     Dosage: 75 MG, PO
     Route: 048
     Dates: start: 20040930, end: 20041116
  2. UFT (TEGAFUR + URACIL) (TEGAFUR URACIL) [Suspect]
     Indication: COLON CANCER
     Dosage: 2.5 G, PO
     Route: 048
     Dates: start: 20040930, end: 20041116

REACTIONS (4)
  - DIARRHOEA [None]
  - RED BLOOD CELL COUNT DECREASED [None]
  - STOMATITIS [None]
  - VOMITING [None]
